FAERS Safety Report 10752349 (Version 6)
Quarter: 2016Q1

REPORT INFORMATION
  Report Type: Report from Study
  Country: CA (occurrence: CA)
  Receive Date: 20150130
  Receipt Date: 20160131
  Transmission Date: 20160525
  Serious: No
  Sender: FDA-Public Use
  Company Number: PHHY2014CA084703

PATIENT
  Sex: Male

DRUGS (3)
  1. TASIGNA [Suspect]
     Active Substance: NILOTINIB
     Indication: CHRONIC MYELOID LEUKAEMIA
     Dosage: 300 MG, BID
     Route: 048
     Dates: start: 20140104
  2. TASIGNA [Suspect]
     Active Substance: NILOTINIB
     Dosage: 400 MG, BID
     Route: 048
  3. TASIGNA [Suspect]
     Active Substance: NILOTINIB
     Dosage: 300 MG, BID
     Route: 065
     Dates: start: 201504

REACTIONS (12)
  - Glossodynia [Unknown]
  - Sensitivity of teeth [Recovered/Resolved]
  - Gingival pain [Recovered/Resolved]
  - Abnormal faeces [Unknown]
  - Incorrect dose administered [Unknown]
  - Cardiac disorder [Unknown]
  - Aortic occlusion [Unknown]
  - Oral discomfort [Recovered/Resolved]
  - Drug prescribing error [Unknown]
  - Skin sensitisation [Unknown]
  - Urine odour abnormal [Unknown]
  - Dyspepsia [Unknown]
